FAERS Safety Report 9462103 (Version 1)
Quarter: 2013Q3

REPORT INFORMATION
  Report Type: Spontaneous
  Country: NL (occurrence: NL)
  Receive Date: 20130816
  Receipt Date: 20130816
  Transmission Date: 20140515
  Serious: Yes (Hospitalization, Other)
  Sender: FDA-Public Use
  Company Number: NL-ELI_LILLY_AND_COMPANY-NL201308003130

PATIENT
  Age: 27 Year
  Sex: Female
  Weight: 104 kg

DRUGS (2)
  1. ZYPREXA [Suspect]
     Indication: MANIA
     Dosage: 20 MG, QD
     Route: 065
     Dates: start: 20120619
  2. ZYPREXA [Suspect]
     Dosage: 1 DF, QD
     Route: 065

REACTIONS (4)
  - Weight increased [Not Recovered/Not Resolved]
  - Obesity [Not Recovered/Not Resolved]
  - Agoraphobia [Unknown]
  - Malaise [Unknown]
